FAERS Safety Report 4946147-2 (Version None)
Quarter: 2006Q1

REPORT INFORMATION
  Report Type: 
  Country: None (occurrence: None)
  Receive Date: 20060118
  Receipt Date: 20050224
  Transmission Date: 20060701
  Serious: Yes (Other)
  Sender: FDA-Public Use
  Company Number: BDI-006988

PATIENT
  Age: 37 Year
  Sex: Female
  Weight: 91 kg

DRUGS (2)
  1. PROHANCE [Suspect]
     Indication: HYPOAESTHESIA
     Dosage: 20 ML ONCE IV
     Route: 042
     Dates: start: 20050223, end: 20050223
  2. PROHANCE [Suspect]
     Indication: NUCLEAR MAGNETIC RESONANCE IMAGING
     Dosage: 20 ML ONCE IV
     Route: 042
     Dates: start: 20050223, end: 20050223

REACTIONS (3)
  - HYPOAESTHESIA [None]
  - URTICARIA [None]
  - VOMITING [None]
